FAERS Safety Report 20394362 (Version 8)
Quarter: 2023Q2

REPORT INFORMATION
  Report Type: Report from Study
  Country: US (occurrence: US)
  Receive Date: 20220129
  Receipt Date: 20230510
  Transmission Date: 20230722
  Serious: No
  Sender: FDA-Public Use
  Company Number: US-NOVARTISTESTPH-NVSC2022US018333

PATIENT
  Age: 12 Year
  Sex: Female

DRUGS (3)
  1. ILARIS [Suspect]
     Active Substance: CANAKINUMAB
     Indication: Still^s disease
     Dosage: 131 MG, Q4W
     Route: 058
     Dates: start: 20200425
  2. ILARIS [Suspect]
     Active Substance: CANAKINUMAB
     Dosage: 215 MG, OTHER (EVERY 4 WEEKS)
     Route: 058
     Dates: start: 20191219
  3. ILARIS [Suspect]
     Active Substance: CANAKINUMAB
     Dosage: 215 MG, OTHER (EVERY 4 WEEKS)
     Route: 058
     Dates: start: 20230128

REACTIONS (3)
  - COVID-19 [Unknown]
  - Influenza [Unknown]
  - Inappropriate schedule of product administration [Unknown]

NARRATIVE: CASE EVENT DATE: 20220101
